FAERS Safety Report 12247276 (Version 1)
Quarter: 2016Q2

REPORT INFORMATION
  Report Type: Report from Study
  Country: AU (occurrence: AU)
  Receive Date: 20160407
  Receipt Date: 20160407
  Transmission Date: 20160815
  Serious: Yes (Hospitalization)
  Sender: FDA-Public Use
  Company Number: AU-ABBVIE-16P-008-1598157-00

PATIENT
  Sex: Male

DRUGS (1)
  1. VIEKIRA PAK [Suspect]
     Active Substance: DASABUVIR\OMBITASVIR\PARITAPREVIR\RITONAVIR
     Indication: HEPATITIS C
     Route: 048
     Dates: start: 20151008

REACTIONS (5)
  - Tooth infection [Recovered/Resolved]
  - Malaise [Recovered/Resolved]
  - Systemic infection [Recovered/Resolved]
  - Endocarditis [Recovered/Resolved]
  - Epistaxis [Recovered/Resolved]
